FAERS Safety Report 23104895 (Version 1)
Quarter: 2023Q4

REPORT INFORMATION
  Report Type: Spontaneous
  Country: US (occurrence: None)
  Receive Date: 20231024
  Receipt Date: 20231024
  Transmission Date: 20240109
  Serious: No
  Sender: FDA-Public Use
  Company Number: None

PATIENT
  Age: 72 Year
  Sex: Female

DRUGS (1)
  1. BREXUCABTAGENE AUTOLEUCEL [Suspect]
     Active Substance: BREXUCABTAGENE AUTOLEUCEL
     Dates: start: 20230717

REACTIONS (7)
  - Fall [None]
  - Syncope [None]
  - Neurotoxicity [None]
  - Central nervous system lesion [None]
  - Meningoencephalitis herpetic [None]
  - Urinary tract infection [None]
  - Metastases to meninges [None]
